FAERS Safety Report 6162589-4 (Version None)
Quarter: 2009Q2

REPORT INFORMATION
  Report Type: 
  Country: None (occurrence: None)
  Receive Date: 20090421
  Receipt Date: 20080401
  Transmission Date: 20091009
  Serious: Yes (Other)
  Sender: FDA-Public Use
  Company Number: US-ASTRAZENECA-2006UW13202

PATIENT
  Age: 63 Year
  Sex: Female
  Weight: 88.5 kg

DRUGS (6)
  1. ARIMIDEX [Suspect]
     Indication: BREAST CANCER RECURRENT
     Route: 048
     Dates: start: 20040101
  2. METFORMIN HCL [Concomitant]
  3. AVANDIA [Concomitant]
  4. ATENOLOL [Concomitant]
  5. ZESTRIL [Concomitant]
  6. ZETIA [Concomitant]

REACTIONS (3)
  - BREAST CANCER RECURRENT [None]
  - FLATULENCE [None]
  - PANCREATITIS [None]
